FAERS Safety Report 12254544 (Version 1)
Quarter: 2016Q2

REPORT INFORMATION
  Report Type: Spontaneous
  Country: JP (occurrence: JP)
  Receive Date: 20160411
  Receipt Date: 20160411
  Transmission Date: 20160815
  Serious: Yes (Hospitalization)
  Sender: FDA-Public Use
  Company Number: GXJP2016JP000656

PATIENT
  Age: 54 Year
  Sex: Male

DRUGS (3)
  1. VANCOMYCIN HYDROCHLORIDE FOR INTRAVENOUS INFUSION [Suspect]
     Active Substance: VANCOMYCIN HYDROCHLORIDE
     Indication: PNEUMONIA NECROTISING
     Route: 042
  2. SULBACTAM/AMPICILLIN FOR INTRAVENOUS INJECTION [Suspect]
     Active Substance: AMPICILLIN SODIUM\SULBACTAM SODIUM
     Indication: PNEUMONIA NECROTISING
     Route: 042
  3. LINEZOLID. [Suspect]
     Active Substance: LINEZOLID
     Indication: PNEUMONIA NECROTISING
     Route: 042

REACTIONS (2)
  - Bone marrow failure [Unknown]
  - Drug ineffective [Unknown]
